FAERS Safety Report 7259336-1 (Version None)
Quarter: 2011Q1

REPORT INFORMATION
  Report Type: 
  Country: None (occurrence: None)
  Receive Date: 20110129
  Receipt Date: 20100823
  Transmission Date: 20110831
  Serious: No
  Sender: FDA-Public Use
  Company Number: US-ABBOTT-10P-163-0665772-00

PATIENT
  Age: 56 Year
  Sex: Female

DRUGS (9)
  1. HUMIRA [Suspect]
     Indication: PSORIASIS
     Route: 058
     Dates: start: 20100601
  2. LYRICA [Concomitant]
     Indication: FIBROMYALGIA
  3. PERCOCET [Concomitant]
     Indication: PAIN
  4. ASA [Concomitant]
     Indication: PRODUCT USED FOR UNKNOWN INDICATION
  5. XANAX [Concomitant]
     Indication: NERVOUSNESS
  6. METFORMIN [Concomitant]
     Indication: DIABETES MELLITUS
  7. HYDROCHLOROTHIAZIDE [Concomitant]
     Indication: FLUID RETENTION
  8. LUNESTA [Concomitant]
     Indication: INSOMNIA
  9. CRESTOR [Concomitant]
     Indication: BLOOD CHOLESTEROL

REACTIONS (6)
  - PSORIASIS [None]
  - MALAISE [None]
  - CREPITATIONS [None]
  - RASH PAPULAR [None]
  - ARTHRITIS [None]
  - RHINORRHOEA [None]
